FAERS Safety Report 7525184-8 (Version None)
Quarter: 2011Q2

REPORT INFORMATION
  Report Type: 
  Country: None (occurrence: None)
  Receive Date: 20110606
  Receipt Date: 20110527
  Transmission Date: 20111010
  Serious: Yes (Hospitalization, Other)
  Sender: FDA-Public Use
  Company Number: US-ASTRAZENECA-2011SE07340

PATIENT
  Age: 56 Year
  Sex: Female

DRUGS (21)
  1. SEROQUEL [Suspect]
     Indication: DEPRESSION
     Route: 048
     Dates: start: 20080101, end: 20110105
  2. AMBIEN [Concomitant]
     Indication: SLEEP DISORDER
  3. SEROQUEL [Suspect]
     Indication: BIPOLAR DISORDER
     Route: 048
     Dates: start: 20080101, end: 20110105
  4. SEROQUEL [Suspect]
     Route: 048
  5. CELEXA [Concomitant]
  6. SEROQUEL [Suspect]
     Indication: PANIC ATTACK
     Route: 048
     Dates: start: 20080101, end: 20110105
  7. SEROQUEL [Suspect]
     Route: 048
  8. ALLEVE [Concomitant]
     Dosage: AS NEEDED
  9. SEROQUEL [Suspect]
     Route: 048
  10. XANAX [Concomitant]
  11. RESTORIL [Concomitant]
  12. CELEXA [Concomitant]
  13. SEROQUEL [Suspect]
     Indication: ANXIETY
     Route: 048
     Dates: start: 20080101, end: 20110105
  14. SEROQUEL [Suspect]
     Route: 048
  15. AMBIEN CR [Concomitant]
  16. BUPROPION HCL [Concomitant]
  17. SEROQUEL [Suspect]
     Route: 048
  18. SEROQUEL [Suspect]
     Indication: MIGRAINE
     Route: 048
     Dates: start: 20080101, end: 20110105
  19. SYNTHROID [Concomitant]
  20. PHENERGAN HCL [Concomitant]
     Indication: NAUSEA
     Dosage: AS NEEDED
  21. WELLBUTRIN [Concomitant]

REACTIONS (10)
  - SMALL INTESTINAL OBSTRUCTION [None]
  - DEPRESSION [None]
  - OSTEOPOROSIS [None]
  - INSOMNIA [None]
  - DRUG DOSE OMISSION [None]
  - CHRONIC LYMPHOCYTIC LEUKAEMIA [None]
  - MIGRAINE [None]
  - CHOLECYSTECTOMY [None]
  - INTESTINAL RESECTION [None]
  - COLITIS ULCERATIVE [None]
